FAERS Safety Report 9870645 (Version 2)
Quarter: 2014Q3

REPORT INFORMATION
  Report Type: Spontaneous
  Country: GB (occurrence: GB)
  Receive Date: 20140205
  Receipt Date: 20140714
  Transmission Date: 20150326
  Serious: Yes (Other)
  Sender: FDA-Public Use
  Company Number: GB-009507513-1401USA014459

PATIENT
  Age: 33 Year
  Sex: Female

DRUGS (2)
  1. COMBIVENT [Concomitant]
     Active Substance: ALBUTEROL SULFATE\IPRATROPIUM BROMIDE
     Dosage: UNK, INHALER
     Route: 055
  2. NEXPLANON [Suspect]
     Active Substance: ETONOGESTREL
     Indication: CONTRACEPTION
     Dosage: UNK
     Route: 059
     Dates: start: 20130920

REACTIONS (4)
  - Unintended pregnancy [Recovered/Resolved]
  - Feeling abnormal [Unknown]
  - Medical device complication [Unknown]
  - Abortion induced [Unknown]

NARRATIVE: CASE EVENT DATE: 201311
